FAERS Safety Report 16833603 (Version 1)
Quarter: 2019Q3

REPORT INFORMATION
  Report Type: Spontaneous
  Country: CN (occurrence: CN)
  Receive Date: 20190920
  Receipt Date: 20190920
  Transmission Date: 20191005
  Serious: Yes (Other)
  Sender: FDA-Public Use
  Company Number: CN-ROCHE-2405518

PATIENT
  Age: 70 Year
  Sex: Female

DRUGS (7)
  1. CYCLOPHOSPHAMIDE. [Concomitant]
     Active Substance: CYCLOPHOSPHAMIDE
     Indication: DIFFUSE LARGE B-CELL LYMPHOMA
     Route: 065
     Dates: start: 20190321
  2. DOXORUBICIN [Concomitant]
     Active Substance: DOXORUBICIN
     Indication: DIFFUSE LARGE B-CELL LYMPHOMA
     Route: 065
     Dates: start: 20190321
  3. MABTHERA [Suspect]
     Active Substance: RITUXIMAB
     Indication: DIFFUSE LARGE B-CELL LYMPHOMA
     Route: 065
     Dates: start: 2019, end: 2019
  4. MABTHERA [Suspect]
     Active Substance: RITUXIMAB
     Route: 065
     Dates: start: 20190802
  5. VINCRISTINE [Concomitant]
     Active Substance: VINCRISTINE
     Indication: DIFFUSE LARGE B-CELL LYMPHOMA
     Route: 065
     Dates: start: 20190321
  6. PREDNISONE. [Concomitant]
     Active Substance: PREDNISONE
     Indication: DIFFUSE LARGE B-CELL LYMPHOMA
     Route: 065
     Dates: start: 20190321
  7. METHOTREXATE. [Concomitant]
     Active Substance: METHOTREXATE
     Indication: DIFFUSE LARGE B-CELL LYMPHOMA
     Route: 065
     Dates: start: 20190802

REACTIONS (23)
  - Cholelithiasis [Unknown]
  - Arteriosclerosis coronary artery [Unknown]
  - Bone lesion [Unknown]
  - Cerebral infarction [Unknown]
  - Vitreous detachment [Unknown]
  - Cataract [Unknown]
  - Hyperpyrexia [Unknown]
  - Fracture [Unknown]
  - Pupillary disorder [Unknown]
  - Gastrointestinal disorder [Unknown]
  - Cerebral small vessel ischaemic disease [Unknown]
  - Demyelination [Unknown]
  - Lung neoplasm [Unknown]
  - Retching [Unknown]
  - Abdominal distension [Unknown]
  - Lipoma [Unknown]
  - Chills [Unknown]
  - Heart rate increased [Unknown]
  - Vitreous opacities [Unknown]
  - Iris coloboma [Unknown]
  - Neuropathic muscular atrophy [Unknown]
  - White blood cell count decreased [Unknown]
  - Cystic lung disease [Unknown]

NARRATIVE: CASE EVENT DATE: 2019
